FAERS Safety Report 22399010 (Version 1)
Quarter: 2023Q2

REPORT INFORMATION
  Report Type: Spontaneous
  Country: KR (occurrence: KR)
  Receive Date: 20230602
  Receipt Date: 20230602
  Transmission Date: 20230721
  Serious: Yes (Death)
  Sender: FDA-Public Use
  Company Number: KR-ORGANON-O2305KOR003118

PATIENT
  Age: 78 Year
  Sex: Male
  Weight: 58 kg

DRUGS (8)
  1. COZAAR [Suspect]
     Active Substance: LOSARTAN POTASSIUM
     Dosage: UNK
     Route: 048
     Dates: start: 20160715, end: 20190208
  2. CARVEDILOL [Concomitant]
     Active Substance: CARVEDILOL
     Dosage: UNK
     Route: 048
     Dates: start: 20160801, end: 20190216
  3. FUROSEMIDE [Concomitant]
     Active Substance: FUROSEMIDE
     Dosage: UNK
     Route: 048
     Dates: start: 20160721, end: 20190207
  4. FUROSEMIDE [Concomitant]
     Active Substance: FUROSEMIDE
     Dosage: UNK, ROUTE REPORTED AS VEIN
     Route: 042
     Dates: start: 20170309, end: 20190215
  5. PITAVASTATIN CALCIUM PENTAHYDRATE [Concomitant]
     Dosage: UNK
     Route: 048
     Dates: start: 20170310, end: 20190208
  6. FERROUS SULFATE [Concomitant]
     Active Substance: FERROUS SULFATE
     Dosage: UNK
     Route: 048
     Dates: start: 20170313, end: 20190209
  7. LEVOFLOXACIN [Concomitant]
     Active Substance: LEVOFLOXACIN
     Dosage: UNK, ROUTE REPORTED AS VEIN
     Route: 042
     Dates: start: 20190207, end: 20190209
  8. ALBUTEROL SULFATE [Concomitant]
     Active Substance: ALBUTEROL SULFATE
     Dosage: UNK, ROUTE REPORTED AS OTHER
     Dates: start: 20170310, end: 20190216

REACTIONS (1)
  - Pneumonia [Fatal]

NARRATIVE: CASE EVENT DATE: 20190201
